FAERS Safety Report 16316556 (Version 1)
Quarter: 2019Q2

REPORT INFORMATION
  Report Type: Report from Study
  Country: PE (occurrence: PE)
  Receive Date: 20190515
  Receipt Date: 20190515
  Transmission Date: 20190711
  Serious: Yes (Hospitalization, Other)
  Sender: FDA-Public Use
  Company Number: PE-SEATTLE GENETICS-2019SGN00636

PATIENT
  Age: 37 Year
  Sex: Male

DRUGS (1)
  1. BRENTUXIMAB VEDOTIN-MPI [Suspect]
     Active Substance: BRENTUXIMAB VEDOTIN
     Indication: HODGKIN^S DISEASE
     Dosage: 135 MILLIGRAM
     Route: 042
     Dates: start: 20181004, end: 20190322

REACTIONS (13)
  - White blood cell count decreased [Unknown]
  - Haemoglobin decreased [Unknown]
  - Headache [Unknown]
  - General physical health deterioration [Unknown]
  - Pyrexia [Unknown]
  - Dyspnoea [Unknown]
  - Dizziness [Unknown]
  - Hypoaesthesia [Unknown]
  - Nausea [Unknown]
  - Asthenia [Unknown]
  - Hodgkin^s disease [Unknown]
  - Hypersensitivity [Unknown]
  - Fatigue [Unknown]

NARRATIVE: CASE EVENT DATE: 20190125
